FAERS Safety Report 13661741 (Version 1)
Quarter: 2017Q2

REPORT INFORMATION
  Report Type: Spontaneous
  Country: US (occurrence: US)
  Receive Date: 20170616
  Receipt Date: 20170616
  Transmission Date: 20170830
  Serious: No
  Sender: FDA-Public Use
  Company Number: US-SHIRE-US201713391

PATIENT
  Sex: Male

DRUGS (1)
  1. XIIDRA [Suspect]
     Active Substance: LIFITEGRAST
     Indication: PRODUCT USED FOR UNKNOWN INDICATION
     Dosage: 1 GTT (IN EACH EYE), 2X/DAY:BID
     Route: 047
     Dates: start: 20170614

REACTIONS (2)
  - Instillation site erythema [Unknown]
  - Instillation site irritation [Unknown]

NARRATIVE: CASE EVENT DATE: 20170614
